FAERS Safety Report 9648372 (Version 2)
Quarter: 2013Q4

REPORT INFORMATION
  Report Type: Spontaneous
  Country: CO (occurrence: CO)
  Receive Date: 20131028
  Receipt Date: 20131111
  Transmission Date: 20140711
  Serious: Yes (Other)
  Sender: FDA-Public Use
  Company Number: CO-NOVOPROD-390509

PATIENT
  Age: 34 Year
  Sex: Male
  Weight: 98 kg

DRUGS (3)
  1. VICTOZA [Suspect]
     Indication: IMPAIRED FASTING GLUCOSE
     Dosage: 0.6 MG, QD
     Route: 058
     Dates: start: 20131007, end: 20131013
  2. VICTOZA [Suspect]
     Indication: OBESITY
     Dosage: 1.2 MG, QD
     Route: 058
     Dates: start: 20131014, end: 20131014
  3. DESVENLAFAXINE [Concomitant]
     Indication: OBSESSIVE-COMPULSIVE DISORDER
     Dosage: 100 MG, QD
     Route: 048
     Dates: start: 20120820

REACTIONS (6)
  - Vomiting [Unknown]
  - Abdominal pain [Unknown]
  - Abdominal distension [Unknown]
  - Dyspepsia [Unknown]
  - Nausea [Unknown]
  - Dyspepsia [Unknown]
